FAERS Safety Report 25192563 (Version 1)
Quarter: 2025Q2

REPORT INFORMATION
  Report Type: Spontaneous
  Country: RO (occurrence: RO)
  Receive Date: 20250414
  Receipt Date: 20250414
  Transmission Date: 20250717
  Serious: Yes (Hospitalization, Other)
  Sender: MYLAN
  Company Number: RO-shionogi-202500003405

PATIENT
  Age: 39 Year
  Sex: Female

DRUGS (24)
  1. VANCOMYCIN [Suspect]
     Active Substance: VANCOMYCIN
     Indication: Lung abscess
  2. VANCOMYCIN [Suspect]
     Active Substance: VANCOMYCIN
     Route: 065
  3. VANCOMYCIN [Suspect]
     Active Substance: VANCOMYCIN
     Route: 065
  4. VANCOMYCIN [Suspect]
     Active Substance: VANCOMYCIN
  5. TIGECYCLINE [Suspect]
     Active Substance: TIGECYCLINE
     Indication: Lung abscess
  6. TIGECYCLINE [Suspect]
     Active Substance: TIGECYCLINE
     Route: 065
  7. TIGECYCLINE [Suspect]
     Active Substance: TIGECYCLINE
     Route: 065
  8. TIGECYCLINE [Suspect]
     Active Substance: TIGECYCLINE
  9. CASPOFUNGIN [Suspect]
     Active Substance: CASPOFUNGIN
     Indication: Lung abscess
  10. CASPOFUNGIN [Suspect]
     Active Substance: CASPOFUNGIN
     Route: 065
  11. CASPOFUNGIN [Suspect]
     Active Substance: CASPOFUNGIN
     Route: 065
  12. CASPOFUNGIN [Suspect]
     Active Substance: CASPOFUNGIN
  13. CEFIDEROCOL SULFATE TOSYLATE [Suspect]
     Active Substance: CEFIDEROCOL SULFATE TOSYLATE
     Indication: Lung abscess
  14. CEFIDEROCOL SULFATE TOSYLATE [Suspect]
     Active Substance: CEFIDEROCOL SULFATE TOSYLATE
     Route: 065
  15. CEFIDEROCOL SULFATE TOSYLATE [Suspect]
     Active Substance: CEFIDEROCOL SULFATE TOSYLATE
     Route: 065
  16. CEFIDEROCOL SULFATE TOSYLATE [Suspect]
     Active Substance: CEFIDEROCOL SULFATE TOSYLATE
  17. COLISTIN [Suspect]
     Active Substance: COLISTIN
     Indication: Lung abscess
  18. COLISTIN [Suspect]
     Active Substance: COLISTIN
     Route: 065
  19. COLISTIN [Suspect]
     Active Substance: COLISTIN
     Route: 065
  20. COLISTIN [Suspect]
     Active Substance: COLISTIN
  21. METRONIDAZOLE [Suspect]
     Active Substance: METRONIDAZOLE
     Indication: Lung abscess
  22. METRONIDAZOLE [Suspect]
     Active Substance: METRONIDAZOLE
     Route: 065
  23. METRONIDAZOLE [Suspect]
     Active Substance: METRONIDAZOLE
     Route: 065
  24. METRONIDAZOLE [Suspect]
     Active Substance: METRONIDAZOLE

REACTIONS (2)
  - Encephalitis [Recovering/Resolving]
  - Myoclonus [Recovering/Resolving]
